FAERS Safety Report 23969908 (Version 2)
Quarter: 2024Q3

REPORT INFORMATION
  Report Type: Spontaneous
  Country: US (occurrence: US)
  Receive Date: 20240613
  Receipt Date: 20240702
  Transmission Date: 20241017
  Serious: No
  Sender: GLAXOSMITHKLINE
  Company Number: US-GSKCCFUS-Case-02023952_AE-112266

PATIENT
  Sex: Female

DRUGS (1)
  1. BREO ELLIPTA [Suspect]
     Active Substance: FLUTICASONE FUROATE\VILANTEROL TRIFENATATE
     Indication: Asthma
     Dosage: 100/25 MCG
     Route: 055
     Dates: start: 20240401

REACTIONS (3)
  - Wrong technique in device usage process [Unknown]
  - Device monitoring procedure not performed [Unknown]
  - Product complaint [Unknown]
